FAERS Safety Report 7908852-5 (Version None)
Quarter: 2011Q4

REPORT INFORMATION
  Report Type: 
  Country: None (occurrence: None)
  Receive Date: 20111110
  Receipt Date: 20111110
  Transmission Date: 20120403
  Serious: No
  Sender: FDA-Public Use
  Company Number: None

PATIENT
  Sex: Male

DRUGS (2)
  1. OXYCODONE HCL [Suspect]
  2. OXYCODONE HCL EXTENDED-RELEASE [Suspect]
     Dosage: TABLET

REACTIONS (2)
  - MEDICATION ERROR [None]
  - DRUG DISPENSING ERROR [None]
